FAERS Safety Report 8915802 (Version 1)
Quarter: 2012Q4

REPORT INFORMATION
  Report Type: 
  Country: SE (occurrence: SE)
  Receive Date: 20121119
  Receipt Date: 20121119
  Transmission Date: 20130627
  Serious: Yes (Hospitalization)
  Sender: FDA-Public Use
  Company Number: SE-PFIZER INC-2012286152

PATIENT
  Age: 39 Year
  Sex: Female
  Weight: 94.7 kg

DRUGS (5)
  1. GENOTROPIN [Suspect]
     Dosage: 0.1 mg, 1x/day, 7 injections/week
     Route: 058
     Dates: start: 20040311
  2. LEVAXIN [Concomitant]
     Indication: TSH DECREASED
     Dosage: UNK
     Dates: start: 20040415
  3. LEVAXIN [Concomitant]
     Indication: PRIMARY HYPOTHYROIDISM
  4. LASIX RETARD [Concomitant]
     Indication: HYPERTENSION
     Dosage: UNK
     Dates: start: 20050415
  5. ATENOLOL [Concomitant]
     Indication: HYPERTENSION
     Dosage: UNK
     Dates: start: 20050812

REACTIONS (1)
  - Gastric disorder [Unknown]
